FAERS Safety Report 6167195-3 (Version None)
Quarter: 2009Q2

REPORT INFORMATION
  Report Type: 
  Country: None (occurrence: None)
  Receive Date: 20090424
  Receipt Date: 20090414
  Transmission Date: 20091009
  Serious: Yes (Other)
  Sender: FDA-Public Use
  Company Number: US-ABBOTT-09P-163-0560169-00

PATIENT
  Sex: Male
  Weight: 87.168 kg

DRUGS (16)
  1. HUMIRA [Suspect]
     Indication: PSORIASIS
     Dates: start: 20090129
  2. HUMIRA [Suspect]
     Indication: PSORIATIC ARTHROPATHY
  3. TRICOR [Suspect]
     Indication: HYPERLIPIDAEMIA
     Dates: start: 20090228
  4. METHOTREXATE SODIUM [Concomitant]
     Indication: DRUG USE FOR UNKNOWN INDICATION
  5. MOBIC [Concomitant]
     Indication: DRUG USE FOR UNKNOWN INDICATION
  6. INSULIN [Concomitant]
     Indication: DRUG USE FOR UNKNOWN INDICATION
  7. HUMALOG [Concomitant]
     Indication: TYPE 1 DIABETES MELLITUS
     Dosage: 2 IN 1 DAY-75/25 MG/U
     Route: 058
  8. SYNTHROID [Concomitant]
     Indication: HYPOTHYROIDISM
  9. NORVASC [Concomitant]
     Indication: HYPERTENSION
     Route: 048
  10. PRAVASTATIN [Concomitant]
     Indication: HYPERLIPIDAEMIA
     Route: 048
  11. LISINOPRIL [Concomitant]
     Indication: HYPERTENSION
     Route: 048
  12. LISINOPRIL AND HYDROCHLOROTHIAZIDE [Concomitant]
     Indication: HYPERTENSION
     Dosage: 20/25 MG DAILY
     Route: 048
  13. MOBIC [Concomitant]
     Indication: PSORIATIC ARTHROPATHY
     Route: 048
  14. CLONIDINE [Concomitant]
     Indication: HYPERTENSION
     Route: 048
  15. FOLIC ACID [Concomitant]
     Indication: MEDICAL DIET
     Route: 048
  16. METHOTREXATE [Concomitant]
     Indication: PSORIATIC ARTHROPATHY
     Route: 050

REACTIONS (11)
  - BLOOD GLUCOSE INCREASED [None]
  - DEHYDRATION [None]
  - ERYTHEMA [None]
  - FEELING HOT [None]
  - HYPERKALAEMIA [None]
  - HYPOAESTHESIA [None]
  - MYALGIA [None]
  - NODULE [None]
  - POLYURIA [None]
  - RASH [None]
  - SLEEP DISORDER [None]
